FAERS Safety Report 18285651 (Version 2)
Quarter: 2020Q3

REPORT INFORMATION
  Report Type: Spontaneous
  Country: US (occurrence: US)
  Receive Date: 20200918
  Receipt Date: 20200923
  Transmission Date: 20201103
  Serious: No
  Sender: FDA-Public Use
  Company Number: US-TRIS PHARMA, INC.-20US009077

PATIENT

DRUGS (2)
  1. QUILLICHEW ER [Suspect]
     Active Substance: METHYLPHENIDATE HYDROCHLORIDE
     Indication: ATTENTION DEFICIT HYPERACTIVITY DISORDER
     Dosage: 10 MILLIGRAM, BID (MORNING AND AFTERNOON)
     Route: 048
     Dates: start: 201909
  2. QUILLICHEW ER [Suspect]
     Active Substance: METHYLPHENIDATE HYDROCHLORIDE
     Dosage: 20 MILLIGRAM, QD
     Route: 048
     Dates: start: 201904, end: 2019

REACTIONS (4)
  - Social avoidant behaviour [Recovered/Resolved]
  - Off label use [Unknown]
  - Sedation [Recovered/Resolved]
  - Personality change [Recovered/Resolved]

NARRATIVE: CASE EVENT DATE: 2019
